FAERS Safety Report 7463749-2 (Version None)
Quarter: 2011Q2

REPORT INFORMATION
  Report Type: 
  Country: None (occurrence: None)
  Receive Date: 20110506
  Receipt Date: 20110427
  Transmission Date: 20111010
  Serious: Yes (Other)
  Sender: FDA-Public Use
  Company Number: US-PERRIGO-11US003541

PATIENT
  Age: 26 Month

DRUGS (1)
  1. ACETAMINOPHEN [Suspect]
     Indication: ACCIDENTAL OVERDOSE
     Dosage: APPROXIMATELY 2880 MG, SINGLE
     Route: 048
     Dates: start: 20110422, end: 20110422

REACTIONS (1)
  - ACCIDENTAL OVERDOSE [None]
